FAERS Safety Report 10741479 (Version 1)
Quarter: 2015Q1

REPORT INFORMATION
  Report Type: Spontaneous
  Country: CH (occurrence: CH)
  Receive Date: 20150127
  Receipt Date: 20150127
  Transmission Date: 20150721
  Serious: Yes (Hospitalization)
  Sender: FDA-Public Use
  Company Number: CH-BAYER-2015-008979

PATIENT
  Age: 28 Year
  Sex: Female

DRUGS (2)
  1. ASPIRIN. [Suspect]
     Active Substance: ASPIRIN
     Indication: SUICIDAL IDEATION
     Dosage: 80 DF, ONCE
     Route: 048
     Dates: start: 20130620, end: 20130620
  2. CIPRALEX [Concomitant]
     Active Substance: ESCITALOPRAM OXALATE
     Route: 048

REACTIONS (5)
  - Suicide attempt [Recovered/Resolved]
  - Sedation [Recovered/Resolved]
  - Hepatic enzyme increased [Recovered/Resolved]
  - Blood creatine phosphokinase increased [Recovered/Resolved]
  - Toxicity to various agents [Recovered/Resolved]

NARRATIVE: CASE EVENT DATE: 20130620
